FAERS Safety Report 11866619 (Version 1)
Quarter: 2015Q4

REPORT INFORMATION
  Report Type: Spontaneous
  Country: CA (occurrence: CA)
  Receive Date: 20151224
  Receipt Date: 20151224
  Transmission Date: 20160305
  Serious: Yes (Other)
  Sender: FDA-Public Use
  Company Number: CA-ROCHE-1681625

PATIENT
  Sex: Male

DRUGS (5)
  1. INSULIN [Concomitant]
     Active Substance: INSULIN NOS
  2. ADALAT [Concomitant]
     Active Substance: NIFEDIPINE
  3. XOLAIR [Suspect]
     Active Substance: OMALIZUMAB
     Indication: ASTHMA
     Route: 058
     Dates: start: 20140619
  4. RAMIPRIL. [Concomitant]
     Active Substance: RAMIPRIL
  5. DIABETA (CANADA) [Concomitant]

REACTIONS (14)
  - Cough [Unknown]
  - Aphonia [Unknown]
  - Hordeolum [Recovered/Resolved]
  - Sputum abnormal [Unknown]
  - Increased viscosity of bronchial secretion [Unknown]
  - Productive cough [Unknown]
  - Eyelid oedema [Not Recovered/Not Resolved]
  - Type 2 diabetes mellitus [Unknown]
  - Blood glucose abnormal [Unknown]
  - Drug ineffective [Unknown]
  - Oropharyngeal pain [Unknown]
  - Condition aggravated [Unknown]
  - Dyspnoea exertional [Unknown]
  - Hypophagia [Unknown]

NARRATIVE: CASE EVENT DATE: 2015
